FAERS Safety Report 15072457 (Version 1)
Quarter: 2018Q2

REPORT INFORMATION
  Report Type: Spontaneous
  Country: FR (occurrence: FR)
  Receive Date: 20180626
  Receipt Date: 20180626
  Transmission Date: 20180711
  Serious: Yes (Other)
  Sender: FDA-Public Use
  Company Number: FR-009507513-1806FRA010769

PATIENT
  Age: 55 Year
  Sex: Female
  Weight: 60 kg

DRUGS (1)
  1. MONTELUKAST SODIUM. [Suspect]
     Active Substance: MONTELUKAST SODIUM
     Indication: ASTHMA
     Dosage: 10 MG, QD
     Route: 048
     Dates: start: 20140203, end: 20180406

REACTIONS (7)
  - Myalgia [Recovering/Resolving]
  - Neutropenia [Recovered/Resolved]
  - Aspartate aminotransferase increased [Recovered/Resolved]
  - Pyrexia [Recovered/Resolved]
  - Leukopenia [Recovered/Resolved]
  - Alanine aminotransferase increased [Recovered/Resolved]
  - Asthenia [Recovering/Resolving]

NARRATIVE: CASE EVENT DATE: 201801
